FAERS Safety Report 4427058-8 (Version None)
Quarter: 2004Q3

REPORT INFORMATION
  Report Type: 
  Country: None (occurrence: None)
  Receive Date: 20040726
  Receipt Date: 20040524
  Transmission Date: 20050211
  Serious: No
  Sender: FDA-Public Use
  Company Number: US_990928486

PATIENT
  Age: 81 Year
  Sex: Female
  Weight: 43 kg

DRUGS (6)
  1. EVISTA [Suspect]
     Indication: OSTEOPOROSIS
     Dosage: 30 MG 1 DAY
     Dates: start: 19990801
  2. FORTEO [Suspect]
     Indication: OSTEOPOROSIS
     Dosage: 20 UG I DAY
     Dates: start: 20040301
  3. VISUDYNE [Concomitant]
  4. OCUVITE [Concomitant]
  5. MULTIVITAMIN [Concomitant]
  6. CALCIUM [Concomitant]

REACTIONS (5)
  - FATIGUE [None]
  - HOT FLUSH [None]
  - HYPOGLYCAEMIA [None]
  - INSOMNIA [None]
  - MUSCLE CRAMP [None]
